FAERS Safety Report 6289136-0 (Version None)
Quarter: 2009Q3

REPORT INFORMATION
  Report Type: 
  Country: None (occurrence: None)
  Receive Date: 20090729
  Receipt Date: 20080530
  Transmission Date: 20100115
  Serious: Yes (Other)
  Sender: FDA-Public Use
  Company Number: US-ASTRAZENECA-2006UW11020

PATIENT
  Age: 40 Year
  Sex: Female
  Weight: 64.5 kg

DRUGS (24)
  1. SEROQUEL [Suspect]
     Route: 048
     Dates: end: 20010101
  2. SEROQUEL [Suspect]
     Dosage: 25 MG-900 MG
     Route: 048
     Dates: start: 20030930
  3. ZYPREXA [Suspect]
     Indication: BIPOLAR DISORDER
  4. ABILIFY [Concomitant]
  5. GEODON [Concomitant]
  6. HALDOL [Concomitant]
  7. RISPERDAL [Concomitant]
  8. THORAZINE [Concomitant]
  9. ATIVAN [Concomitant]
  10. LANCET [Concomitant]
  11. IMITREX [Concomitant]
  12. DEPAKOTE [Concomitant]
  13. AVANDIA [Concomitant]
  14. REMERON [Concomitant]
  15. WELLBUTRIN [Concomitant]
  16. TRAZODONE HCL [Concomitant]
  17. TEGRETOL [Concomitant]
  18. SONATA [Concomitant]
  19. PROVIGIL [Concomitant]
  20. GLUCOVANCE [Concomitant]
  21. KLONOPIN [Concomitant]
  22. BYETTA [Concomitant]
  23. LYRICA [Concomitant]
  24. LAMICTAL [Concomitant]

REACTIONS (2)
  - DIABETES MELLITUS [None]
  - DIABETIC NEUROPATHY [None]
